FAERS Safety Report 12147658 (Version 5)
Quarter: 2016Q2

REPORT INFORMATION
  Report Type: Spontaneous
  Country: CH (occurrence: CH)
  Receive Date: 20160304
  Receipt Date: 20160516
  Transmission Date: 20160815
  Serious: Yes (Other)
  Sender: FDA-Public Use
  Company Number: CH-LPDUSPRD-20160186

PATIENT
  Age: 55 Year
  Sex: Female
  Weight: 58 kg

DRUGS (7)
  1. FERINJECT [Suspect]
     Active Substance: FERRIC CARBOXYMALTOSE
     Dosage: 500 MG
     Route: 041
     Dates: start: 20160128, end: 20160128
  2. LOPRESOR RETARD DIVITABS [Concomitant]
     Dosage: 1/2-0-0-0
     Route: 065
  3. SPIRALGIN [Concomitant]
     Dosage: 1 DF, 1 IN 1 D
     Route: 065
  4. TEMESTA [Concomitant]
     Active Substance: LORAZEPAM
     Dosage: DOSE UNK; FOR 17 YEARS
     Route: 065
  5. FEMOSTON 1/10 [Concomitant]
     Dosage: 1 IN 1 D
     Route: 048
  6. RIOPAN [Concomitant]
     Active Substance: MAGALDRATE
     Dosage: IF REQUIRED
     Route: 065
  7. LIMBITROL [Concomitant]
     Active Substance: AMITRIPTYLINE\CHLORDIAZEPOXIDE
     Dosage: 2 IN 1 D
     Route: 065

REACTIONS (9)
  - Bronchitis [Unknown]
  - Infection [Unknown]
  - Abdominal pain lower [Unknown]
  - Blood immunoglobulin E increased [Unknown]
  - Anaphylactoid reaction [Unknown]
  - Pain [Unknown]
  - Pyrexia [Unknown]
  - Rales [Unknown]
  - Abdominal tenderness [Recovered/Resolved]

NARRATIVE: CASE EVENT DATE: 2016
